FAERS Safety Report 4808243-X (Version None)
Quarter: 2005Q4

REPORT INFORMATION
  Report Type: 
  Country: None (occurrence: None)
  Receive Date: 20051021
  Receipt Date: 20051005
  Transmission Date: 20060501
  Serious: Yes (Death)
  Sender: FDA-Public Use
  Company Number: 8796

PATIENT
  Age: 28 Year
  Sex: Male

DRUGS (1)
  1. VINCRISTINE SULFATE [Suspect]
     Indication: BURKITT'S LYMPHOMA

REACTIONS (4)
  - GENERAL PHYSICAL HEALTH DETERIORATION [None]
  - INCORRECT ROUTE OF DRUG ADMINISTRATION [None]
  - NEUROTOXICITY [None]
  - PARALYSIS [None]
